FAERS Safety Report 9374468 (Version 1)
Quarter: 2013Q2

REPORT INFORMATION
  Report Type: Report from Study
  Country: JP (occurrence: JP)
  Receive Date: 20130628
  Receipt Date: 20130628
  Transmission Date: 20140414
  Serious: No
  Sender: FDA-Public Use
  Company Number: JP-JNJFOC-20130615135

PATIENT
  Age: 34 Year
  Sex: Male

DRUGS (9)
  1. STELARA [Suspect]
     Indication: PSORIASIS
     Route: 058
     Dates: start: 20130307, end: 20130307
  2. STELARA [Suspect]
     Indication: PSORIASIS
     Route: 058
     Dates: start: 20121213, end: 20121213
  3. STELARA [Suspect]
     Indication: PSORIASIS
     Route: 058
     Dates: start: 20120920, end: 20120920
  4. STELARA [Suspect]
     Indication: PSORIASIS
     Route: 058
     Dates: start: 20120628, end: 20120628
  5. STELARA [Suspect]
     Indication: PSORIASIS
     Route: 058
     Dates: start: 20120329, end: 20120329
  6. STELARA [Suspect]
     Indication: PSORIASIS
     Route: 058
     Dates: start: 20120301, end: 20120301
  7. DOVONEX [Concomitant]
     Indication: PSORIASIS
     Route: 061
     Dates: start: 20120118
  8. DERMOVATE [Concomitant]
     Indication: PSORIASIS
     Route: 061
     Dates: start: 20120118
  9. METHADERM [Concomitant]
     Indication: PSORIASIS
     Route: 061
     Dates: start: 20120118

REACTIONS (1)
  - Hepatic function abnormal [Not Recovered/Not Resolved]
